FAERS Safety Report 4334703-4 (Version None)
Quarter: 2004Q2

REPORT INFORMATION
  Report Type: 
  Country: None (occurrence: None)
  Receive Date: 20040407
  Receipt Date: 20040407
  Transmission Date: 20050107
  Serious: Yes (Life-Threatening, Hospitalization, Disabling)
  Sender: FDA-Public Use
  Company Number: None

PATIENT
  Age: 40 Year
  Sex: Female
  Weight: 70.3075 kg

DRUGS (1)
  1. PAXIL CR [Suspect]
     Indication: PREMENSTRUAL SYNDROME
     Dosage: 12.5 MG CR  AURICULAR
     Route: 001
     Dates: start: 20030501, end: 20030521

REACTIONS (1)
  - DRUG WITHDRAWAL SYNDROME [None]
